FAERS Safety Report 7518301-7 (Version None)
Quarter: 2011Q2

REPORT INFORMATION
  Report Type: 
  Country: None (occurrence: None)
  Receive Date: 20110602
  Receipt Date: 20110520
  Transmission Date: 20111010
  Serious: Yes (Hospitalization, Other)
  Sender: FDA-Public Use
  Company Number: US-BAYER-201013336NA

PATIENT
  Age: 45 Year
  Sex: Female
  Weight: 95 kg

DRUGS (25)
  1. LIPITOR [Concomitant]
  2. LITHIUM CARBONATE [Concomitant]
     Indication: BIPOLAR DISORDER
     Dates: start: 20091119
  3. LITHIUM CARBONATE [Concomitant]
     Dates: start: 20090601, end: 20091119
  4. ACETAMINOPHEN [Concomitant]
     Indication: HEADACHE
  5. FAMOTIDINE [Concomitant]
     Dates: start: 20091101
  6. YAZ [Suspect]
     Indication: PRODUCT USED FOR UNKNOWN INDICATION
     Route: 048
     Dates: start: 20091001, end: 20091111
  7. SYNTHROID [Concomitant]
     Indication: THYROID DISORDER
     Dates: start: 20091121
  8. PLAVIX [Concomitant]
     Indication: THROMBOSIS PROPHYLAXIS
     Dates: start: 20091101
  9. LEVOTHYROXINE SODIUM [Concomitant]
     Dates: start: 20091101
  10. IMATISEN [Concomitant]
     Indication: SLEEP DISORDER
  11. DESYREL [Concomitant]
     Indication: SLEEP DISORDER
  12. ANTIBIOTICS [Concomitant]
  13. TEGRETOL [Concomitant]
  14. PEPCID [Concomitant]
     Indication: ANTACID THERAPY
  15. LITHIUM CARBONATE [Concomitant]
  16. BUPROPION HCL [Concomitant]
     Dates: start: 20081201, end: 20090201
  17. DESYREL [Concomitant]
     Indication: ANXIETY
     Dates: start: 20091119, end: 20100101
  18. ASPIRIN [Concomitant]
     Indication: THROMBOSIS PROPHYLAXIS
  19. TEGRETOL [Concomitant]
     Indication: THROMBOSIS PROPHYLAXIS
  20. EPITOL [Concomitant]
     Dates: start: 20090501, end: 20090801
  21. CELEXA [Concomitant]
     Indication: DEPRESSION
     Dates: start: 20091119
  22. ZOCOR [Concomitant]
     Indication: ANTACID THERAPY
     Dates: start: 20091101
  23. EPITOL [Concomitant]
     Dates: start: 20091201
  24. IMODIUM [Concomitant]
     Indication: DIARRHOEA
  25. COUMADIN [Concomitant]
     Indication: CEREBRAL THROMBOSIS

REACTIONS (14)
  - DYSPHAGIA [None]
  - ABASIA [None]
  - CEREBRAL THROMBOSIS [None]
  - ISCHAEMIC STROKE [None]
  - DYSARTHRIA [None]
  - HEMIANOPIA HOMONYMOUS [None]
  - DISTURBANCE IN ATTENTION [None]
  - HEMIPARESIS [None]
  - COGNITIVE DISORDER [None]
  - MEMORY IMPAIRMENT [None]
  - MENTAL IMPAIRMENT [None]
  - URINARY TRACT INFECTION [None]
  - INJURY [None]
  - HYPERTONIA [None]
